FAERS Safety Report 8917518 (Version 1)
Quarter: 2012Q4

REPORT INFORMATION
  Report Type: 
  Country: US (occurrence: US)
  Receive Date: 20121120
  Receipt Date: 20121120
  Transmission Date: 20130627
  Serious: Yes (Hospitalization)
  Sender: FDA-Public Use
  Company Number: US-BAYER-2012-083805

PATIENT
  Age: 61 Year
  Sex: Female
  Weight: 120.18 kg

DRUGS (11)
  1. SORAFENIB (RAF KINASE INHIBITOR) [Suspect]
     Indication: BREAST CANCER METASTATIC
     Dosage: 400 mg, BID
     Route: 048
     Dates: start: 20120620, end: 20120827
  2. IXABEPILONE [Suspect]
     Indication: BREAST CANCER METASTATIC
     Dosage: 20 mg/m2, day 1
     Route: 042
     Dates: start: 20120620, end: 20120822
  3. BYSTOLIC [Concomitant]
     Indication: HYPERTENSION
     Dosage: 10 mg, UNK
  4. INDAPAMIDE [Concomitant]
     Indication: HYPERTENSION
     Dosage: 2.5 mg, UNK
  5. LEXAPRO [Concomitant]
     Indication: DEPRESSION
     Dosage: 20 mg, UNK
  6. AMBIEN [Concomitant]
     Indication: INSOMNIA
     Dosage: 10 mg, UNK
  7. COMPAZINE [Concomitant]
     Indication: NAUSEA
     Dosage: 10 mg, UNK
  8. ZOFRAN [Concomitant]
     Indication: NAUSEA
     Dosage: 8 mg, UNK
     Dates: start: 20120622
  9. PAXIL [Concomitant]
     Indication: DEPRESSION
     Dosage: 20 mg, UNK
     Dates: start: 20120622
  10. K-DUR [Concomitant]
     Indication: HYPOKALEMIA
     Dosage: 20 mEq, UNK
     Dates: start: 20120621
  11. DIFLUCAN [Concomitant]
     Indication: YEAST INFECTION
     Dosage: 200 mg, UNK
     Dates: start: 20120307

REACTIONS (2)
  - Hypokalaemia [Recovered/Resolved]
  - Failure to thrive [Recovered/Resolved]
